FAERS Safety Report 16137933 (Version 9)
Quarter: 2023Q2

REPORT INFORMATION
  Report Type: Report from Study
  Country: JP (occurrence: JP)
  Receive Date: 20190401
  Receipt Date: 20230522
  Transmission Date: 20230722
  Serious: Yes (Hospitalization, Other)
  Sender: FDA-Public Use
  Company Number: JP-ONO-2019JP010808

PATIENT
  Age: 67 Year
  Sex: Female
  Weight: 40.5 kg

DRUGS (18)
  1. ETELCALCETIDE [Suspect]
     Active Substance: ETELCALCETIDE
     Indication: Hyperparathyroidism secondary
     Dosage: 5 MG, Q56H, DIALYSIS (TUESDAY, THURSDAY, SATURDAY)
     Route: 010
     Dates: start: 20180818
  2. PNEUMOCOCCAL VACCINE POLYVALENT NOS [Suspect]
     Active Substance: PNEUMOCOCCAL VACCINE POLYVALENT
     Indication: Product used for unknown indication
     Dosage: UNK
     Route: 058
  3. SULFAMETHOXAZOLE\TRIMETHOPRIM [Suspect]
     Active Substance: SULFAMETHOXAZOLE\TRIMETHOPRIM
     Indication: Eosinophilic pneumonia
     Dosage: DOSE UNSPECIFIED
     Route: 048
     Dates: start: 20181221, end: 20190106
  4. TENELIGLIPTIN [Suspect]
     Active Substance: TENELIGLIPTIN
     Indication: Blood glucose increased
     Dosage: DOSE UNSPECIFIED
     Route: 048
     Dates: start: 20190101, end: 20190107
  5. MAXACALCITOL [Concomitant]
     Active Substance: MAXACALCITOL
     Indication: Hyperparathyroidism secondary
     Dosage: 5 UG, Q84H, DIALYSIS (TUESDAY, SATURDAY)
     Route: 065
  6. ESOMEPRAZOLE MAGNESIUM [Concomitant]
     Active Substance: ESOMEPRAZOLE MAGNESIUM
     Indication: Gastrooesophageal reflux disease
     Dosage: 1 DOSAGE FORM, QD
     Route: 048
     Dates: start: 20130521
  7. MOBIC [Concomitant]
     Active Substance: MELOXICAM
     Indication: Back pain
     Dosage: 10 MG, EVERYDAY
     Route: 048
     Dates: start: 20150430
  8. FERRIC CITRATE ANHYDROUS [Concomitant]
     Active Substance: FERRIC CITRATE ANHYDROUS
     Indication: Hyperphosphataemia
     Dosage: 500 MILLIGRAM, Q8H
     Route: 048
     Dates: start: 20170223
  9. FOSRENOL [Concomitant]
     Active Substance: LANTHANUM CARBONATE
     Indication: Osteoporosis
     Dosage: 250 MILLIGRAM, Q8H
     Route: 048
     Dates: start: 20180501
  10. ICOSAPENT ETHYL [Concomitant]
     Active Substance: ICOSAPENT ETHYL
     Indication: Hyperlipidaemia
     Dosage: 900 MILLIGRAM, Q12H
     Route: 048
     Dates: start: 20170530
  11. BROTIZOLAM [Concomitant]
     Active Substance: BROTIZOLAM
     Indication: Insomnia
     Dosage: 0.25 MILLIGRAM, QD
     Route: 048
     Dates: start: 20160519
  12. ETIZOLAM [Concomitant]
     Active Substance: ETIZOLAM
     Indication: Insomnia
     Dosage: 1 MG, EVERYDAY
     Route: 048
     Dates: start: 20150721
  13. ENALAPRIL MALEATE [Concomitant]
     Active Substance: ENALAPRIL MALEATE
     Indication: Hypertension
     Dosage: 5 MG, EVERYDAY
     Route: 048
     Dates: start: 20080401
  14. CARVEDILOL [Concomitant]
     Active Substance: CARVEDILOL
     Indication: Hypertension
     Dosage: 10 MG, EVERYDAY
     Route: 048
     Dates: start: 20080401
  15. KAYEXALATE [Concomitant]
     Active Substance: SODIUM POLYSTYRENE SULFONATE
     Indication: Hyperkalaemia
     Dosage: 3.27 G, EVERYDAY
     Route: 048
     Dates: start: 20141120
  16. AMLODIPINE [Concomitant]
     Active Substance: AMLODIPINE BESYLATE
     Indication: Hypertension
     Dosage: 5 MILLIGRAM, Q12H
     Route: 048
     Dates: start: 20180403
  17. LYRICA [Concomitant]
     Active Substance: PREGABALIN
     Indication: Back pain
     Dosage: 25 MG, EVERYDAY
     Route: 048
     Dates: start: 20180822
  18. RENAGEL [SEVELAMER CARBONATE] [Concomitant]
     Indication: Hyperphosphataemia
     Dosage: 250 MILLIGRAM, Q8H
     Route: 048
     Dates: start: 20180109

REACTIONS (4)
  - Eosinophilic pneumonia [Recovered/Resolved]
  - Erythema multiforme [Recovered/Resolved]
  - Osteoarthritis [Recovering/Resolving]
  - Blood glucose increased [Recovered/Resolved]

NARRATIVE: CASE EVENT DATE: 20181117
